FAERS Safety Report 26017900 (Version 1)
Quarter: 2025Q4

REPORT INFORMATION
  Report Type: Spontaneous
  Country: US (occurrence: US)
  Receive Date: 20251110
  Receipt Date: 20251110
  Transmission Date: 20260117
  Serious: No
  Sender: ROCHE
  Company Number: US-ROCHE-10000421052

PATIENT
  Age: 57 Year
  Sex: Male

DRUGS (9)
  1. TOCILIZUMAB [Suspect]
     Active Substance: TOCILIZUMAB
     Indication: Immune-mediated lung disease
     Dosage: 5 DOSES
     Route: 042
  2. TOCILIZUMAB [Suspect]
     Active Substance: TOCILIZUMAB
     Route: 058
  3. CISPLATIN [Concomitant]
     Active Substance: CISPLATIN
  4. GEMCITABINE [Concomitant]
     Active Substance: GEMCITABINE
  5. NIVOLUMAB [Concomitant]
     Active Substance: NIVOLUMAB
     Dosage: 10 CYCLES
  6. HEPARIN [Concomitant]
     Active Substance: HEPARIN SODIUM
  7. PREDNISONE [Concomitant]
     Active Substance: PREDNISONE
  8. PREDNISONE [Concomitant]
     Active Substance: PREDNISONE
  9. MYCOPHENOLIC ACID [Concomitant]
     Active Substance: MYCOPHENOLIC ACID

REACTIONS (2)
  - Off label use [Unknown]
  - No adverse event [Unknown]
